FAERS Safety Report 8776933 (Version 2)
Quarter: 2013Q2

REPORT INFORMATION
  Report Type: Report from Study
  Country: BR (occurrence: BR)
  Receive Date: 20120911
  Receipt Date: 20130409
  Transmission Date: 20140414
  Serious: Yes (Other)
  Sender: FDA-Public Use
  Company Number: BR-BAYER-2012-090748

PATIENT
  Age: 58 Year
  Sex: Male

DRUGS (6)
  1. NEXAVAR [Suspect]
     Indication: HEPATIC CANCER
     Dosage: 400 MG, BID
     Route: 048
     Dates: start: 201206, end: 2012
  2. OMEPRAZOLE [Concomitant]
     Indication: GASTRIC DISORDER
     Dosage: 40 MG, QD
     Route: 048
  3. BUDESONIDE W/FORMOTEROL FUMARATE [Concomitant]
     Indication: CHRONIC OBSTRUCTIVE PULMONARY DISEASE
     Dosage: UNK
     Route: 045
     Dates: start: 2007
  4. BUDESONIDE W/FORMOTEROL FUMARATE [Concomitant]
     Indication: ASTHMA
  5. RIVOTRIL [Concomitant]
     Indication: ANXIETY
     Dosage: 2 MG, QD
     Route: 048
     Dates: start: 2007
  6. RIVOTRIL [Concomitant]
     Indication: SLEEP DISORDER THERAPY

REACTIONS (22)
  - Asthma [Recovered/Resolved]
  - Chronic obstructive pulmonary disease [Recovered/Resolved]
  - Diarrhoea [Recovered/Resolved]
  - Decreased appetite [Recovered/Resolved]
  - Fatigue [Recovered/Resolved]
  - Asthenia [Not Recovered/Not Resolved]
  - Pruritus [Recovered/Resolved]
  - Skin warm [Recovered/Resolved]
  - Burning sensation [Recovered/Resolved]
  - Nausea [Not Recovered/Not Resolved]
  - Vomiting [Not Recovered/Not Resolved]
  - Weight decreased [Recovered/Resolved]
  - Headache [Recovered/Resolved]
  - Pain [Recovered/Resolved]
  - Spinal pain [Recovered/Resolved]
  - Cardiovascular disorder [Recovered/Resolved]
  - Hyperkeratosis [None]
  - Abdominal pain [None]
  - Muscle atrophy [None]
  - Gait disturbance [None]
  - Fatigue [None]
  - Malaise [None]
